FAERS Safety Report 8826289 (Version 1)
Quarter: 2012Q4

REPORT INFORMATION
  Report Type: 
  Country: US (occurrence: US)
  Receive Date: 20121008
  Receipt Date: 20121008
  Transmission Date: 20130627
  Serious: No
  Sender: FDA-Public Use
  Company Number: US-GLAXOSMITHKLINE-A0982883A

PATIENT
  Age: 42 Year
  Sex: Male

DRUGS (6)
  1. POTIGA [Suspect]
     Indication: CONVULSION
     Dosage: 200MG Three times per day
     Route: 048
  2. KEPPRA [Concomitant]
  3. TRILEPTAL [Concomitant]
  4. CARBAMAZEPINE [Concomitant]
  5. TOPIRAMATE [Concomitant]
  6. CLONAZEPAM [Concomitant]

REACTIONS (6)
  - Urinary retention [Unknown]
  - Lethargy [Unknown]
  - Constipation [Unknown]
  - Amnesia [Unknown]
  - Feeling abnormal [Unknown]
  - Confusional state [Unknown]
